FAERS Safety Report 8122635-5 (Version None)
Quarter: 2012Q1

REPORT INFORMATION
  Report Type: 
  Country: None (occurrence: None)
  Receive Date: 20120208
  Receipt Date: 20120202
  Transmission Date: 20120608
  Serious: Yes (Other)
  Sender: FDA-Public Use
  Company Number: US-ALEXION-A201200149

PATIENT
  Sex: Male

DRUGS (6)
  1. SOLIRIS [Suspect]
     Dosage: 900 MG, Q2W
     Route: 042
     Dates: start: 20080101
  2. OXYCODONE HCL [Concomitant]
     Dosage: UNK, PRN
  3. FOLIC ACID [Concomitant]
     Dosage: 1 MG, QD
     Route: 051
  4. MULTI-VITAMIN [Concomitant]
     Dosage: UNK, QD
  5. ZOLOFT [Concomitant]
     Dosage: 50 MG, QD
     Route: 048
  6. SOLIRIS [Suspect]
     Indication: PAROXYSMAL NOCTURNAL HAEMOGLOBINURIA
     Dosage: 600 MG, QW
     Route: 042
     Dates: start: 20080708

REACTIONS (1)
  - LOSS OF CONSCIOUSNESS [None]
